FAERS Safety Report 6918154-1 (Version None)
Quarter: 2010Q3

REPORT INFORMATION
  Report Type: 
  Country: None (occurrence: None)
  Receive Date: 20100806
  Receipt Date: 20100727
  Transmission Date: 20110219
  Serious: Yes (Hospitalization)
  Sender: FDA-Public Use
  Company Number: 3262010

PATIENT
  Age: 57 Year
  Sex: Female

DRUGS (2)
  1. TIMOLOL MALEATE [Suspect]
     Indication: OCULAR HYPERTENSION
     Dosage: BID
     Dates: start: 20100421, end: 20100616
  2. TIMOLOL MALEATE [Suspect]
     Indication: OPEN ANGLE GLAUCOMA
     Dosage: BID
     Dates: start: 20100421, end: 20100616

REACTIONS (2)
  - DIARRHOEA [None]
  - VOMITING [None]
